FAERS Safety Report 11321998 (Version 1)
Quarter: 2015Q3

REPORT INFORMATION
  Report Type: Spontaneous
  Country: FR (occurrence: FR)
  Receive Date: 20150729
  Receipt Date: 20150729
  Transmission Date: 20151125
  Serious: Yes (Life-Threatening, Disabling)
  Sender: FDA-Public Use
  Company Number: FR-HOSPIRA-2835339

PATIENT
  Age: 57 Year
  Sex: Male
  Weight: 66 kg

DRUGS (1)
  1. PAXENE                             /00790702/ [Suspect]
     Active Substance: PACLITAXEL
     Indication: PRODUCT USED FOR UNKNOWN INDICATION
     Route: 042
     Dates: start: 20080222, end: 20080222

REACTIONS (5)
  - Anaphylactic reaction [Recovered/Resolved]
  - Anaphylactic reaction [None]
  - Cyanosis [Recovered/Resolved]
  - Dyspnoea [Recovered/Resolved]
  - Anaphylactoid reaction [None]

NARRATIVE: CASE EVENT DATE: 20080222
